FAERS Safety Report 9861690 (Version 2)
Quarter: 2014Q1

REPORT INFORMATION
  Report Type: Spontaneous
  Country: US (occurrence: US)
  Receive Date: 20140203
  Receipt Date: 20140203
  Transmission Date: 20141002
  Serious: Yes (Other)
  Sender: FDA-Public Use
  Company Number: US-GE HEALTHCARE MEDICAL DIAGNOSTICS-OSCN-PR-0902S-0087

PATIENT
  Sex: Male

DRUGS (9)
  1. OMNISCAN [Suspect]
     Indication: PRODUCT USED FOR UNKNOWN INDICATION
     Route: 042
     Dates: start: 20010131, end: 20010131
  2. OMNISCAN [Suspect]
     Route: 042
     Dates: start: 20030227, end: 20030227
  3. MAGNEVIST [Suspect]
     Indication: PRODUCT USED FOR UNKNOWN INDICATION
     Dates: start: 20010131, end: 20010131
  4. MAGNEVIST [Suspect]
     Dates: start: 20030227, end: 20030227
  5. LANOXIN [Concomitant]
     Dates: start: 2000
  6. COUMADIN [Concomitant]
     Dates: start: 2003
  7. NITROQUICK [Concomitant]
     Dates: start: 2001
  8. METOPROLOL [Concomitant]
     Dates: start: 2000
  9. FLOMAX [Concomitant]
     Indication: URINARY HESITATION

REACTIONS (1)
  - Nephrogenic systemic fibrosis [Not Recovered/Not Resolved]
